FAERS Safety Report 13696912 (Version 2)
Quarter: 2017Q3

REPORT INFORMATION
  Report Type: Spontaneous
  Country: US (occurrence: US)
  Receive Date: 20170628
  Receipt Date: 20170712
  Transmission Date: 20171127
  Serious: Yes (Hospitalization)
  Sender: FDA-Public Use
  Company Number: US-JNJFOC-20170622920

PATIENT
  Age: 65 Year
  Sex: Female

DRUGS (1)
  1. ZYTIGA [Suspect]
     Active Substance: ABIRATERONE ACETATE
     Indication: VULVAL CANCER
     Route: 048
     Dates: start: 20161104

REACTIONS (6)
  - Sepsis [Unknown]
  - Off label use [Unknown]
  - Urinary tract infection [Unknown]
  - Renal injury [Unknown]
  - Kidney infection [Recovered/Resolved]
  - Product use in unapproved indication [Unknown]

NARRATIVE: CASE EVENT DATE: 20161104
